FAERS Safety Report 19789119 (Version 2)
Quarter: 2021Q3

REPORT INFORMATION
  Report Type: Report from Study
  Country: EG (occurrence: EG)
  Receive Date: 20210904
  Receipt Date: 20210908
  Transmission Date: 20211014
  Serious: Yes (Other)
  Sender: FDA-Public Use
  Company Number: NVSC2021EG197799

PATIENT
  Age: 23 Year
  Sex: Female

DRUGS (4)
  1. ALL VENT [Concomitant]
     Indication: ASTHMA
     Dosage: UNK UNK, TID (BRONCODILATOR)
     Route: 065
  2. GILENYA [Suspect]
     Active Substance: FINGOLIMOD HYDROCHLORIDE
     Indication: MULTIPLE SCLEROSIS
     Dosage: 0.5 MG, QD
     Route: 048
     Dates: start: 201506, end: 202105
  3. OMEGA 3 [Concomitant]
     Active Substance: OMEGA-3 FATTY ACIDS
     Indication: PRODUCT USED FOR UNKNOWN INDICATION
     Dosage: 1 DF, BID
     Route: 065
  4. SOLU?MEDROL [Concomitant]
     Active Substance: METHYLPREDNISOLONE SODIUM SUCCINATE
     Indication: PRODUCT USED FOR UNKNOWN INDICATION
     Dosage: UNK
     Route: 065

REACTIONS (8)
  - Limb discomfort [Recovering/Resolving]
  - Hypoaesthesia [Recovering/Resolving]
  - Multiple sclerosis relapse [Recovering/Resolving]
  - Dyspnoea [Not Recovered/Not Resolved]
  - Vitamin D decreased [Unknown]
  - Lethargy [Recovering/Resolving]
  - Product dose omission issue [Not Recovered/Not Resolved]
  - Laziness [Recovering/Resolving]

NARRATIVE: CASE EVENT DATE: 201910
